FAERS Safety Report 16053913 (Version 4)
Quarter: 2021Q4

REPORT INFORMATION
  Report Type: Spontaneous
  Country: US (occurrence: None)
  Receive Date: 20190308
  Receipt Date: 20211221
  Transmission Date: 20220303
  Serious: Yes (Other)
  Sender: FDA-Public Use
  Company Number: 2019SE10460

PATIENT
  Age: 12248 Day
  Sex: Male
  Weight: 131.5 kg

DRUGS (34)
  1. PRILOSEC OTC [Suspect]
     Active Substance: OMEPRAZOLE MAGNESIUM
     Indication: Gastrooesophageal reflux disease
     Route: 048
     Dates: start: 2011, end: 2015
  2. PRILOSEC OTC [Suspect]
     Active Substance: OMEPRAZOLE MAGNESIUM
     Indication: Gastrooesophageal reflux disease
     Route: 048
     Dates: start: 20140703
  3. OMEPRAZOLE [Suspect]
     Active Substance: OMEPRAZOLE
     Indication: Gastrooesophageal reflux disease
     Dosage: GENERIC
     Route: 065
     Dates: start: 2012, end: 2014
  4. PANTOPRAZOLE [Suspect]
     Active Substance: PANTOPRAZOLE
     Indication: Gastrooesophageal reflux disease
     Dosage: GENERIC
     Route: 065
     Dates: start: 2015
  5. ASPIRIN [Concomitant]
     Active Substance: ASPIRIN
  6. SPIRONOLACTONE [Concomitant]
     Active Substance: SPIRONOLACTONE
  7. BUMETANIDE [Concomitant]
     Active Substance: BUMETANIDE
  8. CIPROFLOXACIN [Concomitant]
     Active Substance: CIPROFLOXACIN
  9. DOXYCYCLINE [Concomitant]
     Active Substance: DOXYCYCLINE
  10. PROMETHAZINE [Concomitant]
     Active Substance: PROMETHAZINE HYDROCHLORIDE
  11. AMOX/ CLAV [Concomitant]
     Indication: Infection
  12. HYDROCODONE BITARTRATE AND ACETAMINOPHEN [Concomitant]
     Active Substance: ACETAMINOPHEN\HYDROCODONE BITARTRATE
     Indication: Pain
  13. SORBITOL [Concomitant]
     Active Substance: SORBITOL
     Indication: Blood glucose increased
  14. CIPROFLOXACIN [Concomitant]
     Active Substance: CIPROFLOXACIN
  15. GABAPENTIN [Concomitant]
     Active Substance: GABAPENTIN
  16. HYDRALAZINE [Concomitant]
     Active Substance: HYDRALAZINE HYDROCHLORIDE
  17. LANTUS [Concomitant]
     Active Substance: INSULIN GLARGINE
  18. LOSARTAN [Concomitant]
     Active Substance: LOSARTAN
  19. ULTICARE [Concomitant]
  20. DOXAZOSIN [Concomitant]
     Active Substance: DOXAZOSIN MESYLATE
  21. FERROUS SULFATE [Concomitant]
     Active Substance: FERROUS SULFATE
  22. OXYCODONE [Concomitant]
     Active Substance: OXYCODONE
  23. GAVISCON [Concomitant]
     Active Substance: ALUMINUM HYDROXIDE\MAGNESIUM CARBONATE
  24. TUMS [Concomitant]
     Active Substance: CALCIUM CARBONATE
  25. HUMULIN NOS [Concomitant]
     Active Substance: INSULIN HUMAN
  26. CEPHALEXIN [Concomitant]
     Active Substance: CEPHALEXIN
  27. IBUPROFEN [Concomitant]
     Active Substance: IBUPROFEN
  28. MUPIROCIN [Concomitant]
     Active Substance: MUPIROCIN
  29. DICLOFENAC [Concomitant]
     Active Substance: DICLOFENAC
  30. HYDROCHLOROTHIAZIDE [Concomitant]
     Active Substance: HYDROCHLOROTHIAZIDE
  31. CLINDAMYCIN [Concomitant]
     Active Substance: CLINDAMYCIN
  32. TERAZOSIN [Concomitant]
     Active Substance: TERAZOSIN HYDROCHLORIDE
  33. VERAPAMIL [Concomitant]
     Active Substance: VERAPAMIL HYDROCHLORIDE
  34. BUPROPION [Concomitant]
     Active Substance: BUPROPION

REACTIONS (9)
  - Renal failure [Unknown]
  - Chronic kidney disease [Not Recovered/Not Resolved]
  - Acute kidney injury [Not Recovered/Not Resolved]
  - End stage renal disease [Not Recovered/Not Resolved]
  - Renal injury [Unknown]
  - Nephrogenic anaemia [Unknown]
  - Renal tubular necrosis [Unknown]
  - Tubulointerstitial nephritis [Unknown]
  - Rebound acid hypersecretion [Unknown]

NARRATIVE: CASE EVENT DATE: 20150716
